FAERS Safety Report 6573749-2 (Version None)
Quarter: 2010Q1

REPORT INFORMATION
  Report Type: 
  Country: None (occurrence: None)
  Receive Date: 20100208
  Receipt Date: 20100129
  Transmission Date: 20100710
  Serious: Yes (Congenital Anomaly)
  Sender: FDA-Public Use
  Company Number: B0629810A

PATIENT
  Age: 0 Year
  Sex: Female
  Weight: 3 kg

DRUGS (7)
  1. INFLUENZA VACCINE [Suspect]
     Dates: start: 20031016, end: 20031016
  2. RANITIDINE [Suspect]
     Dates: start: 20030627
  3. AMOXICILLIN [Suspect]
     Dates: start: 20030811, end: 20030818
  4. ALBUTEROL [Suspect]
  5. BECLOMETHASONE DIPROPIONATE [Suspect]
  6. PERMETHRIN [Suspect]
     Dates: start: 20030916
  7. IRON [Suspect]
     Dates: start: 20030924, end: 20031201

REACTIONS (1)
  - TALIPES [None]
